FAERS Safety Report 5888465-X (Version None)
Quarter: 2008Q3

REPORT INFORMATION
  Report Type: 
  Country: None (occurrence: None)
  Receive Date: 20080918
  Receipt Date: 20080905
  Transmission Date: 20090109
  Serious: No
  Sender: FDA-Public Use
  Company Number: US-ELI_LILLY_AND_COMPANY-US200808003569

PATIENT
  Age: 32 Year
  Sex: Female

DRUGS (5)
  1. CYMBALTA [Suspect]
     Indication: HEADACHE
     Dosage: 30 MG, DAILY (1/D)
     Dates: start: 20080107, end: 20080309
  2. CYMBALTA [Suspect]
     Dosage: 60 MG, DAILY (1/D)
     Dates: start: 20080310
  3. LOESTRIN 1.5/30 [Concomitant]
     Indication: CONTRACEPTION
  4. METOCLOPRAMIDE [Concomitant]
     Indication: MIGRAINE
     Dosage: UNK, AS NEEDED
  5. MAXALT /USA/ [Concomitant]
     Indication: MIGRAINE
     Dosage: UNK, AS NEEDED

REACTIONS (3)
  - ABDOMINAL PAIN [None]
  - HEPATIC ENZYME INCREASED [None]
  - HEPATIC LESION [None]
